FAERS Safety Report 14477598 (Version 1)
Quarter: 2018Q1

REPORT INFORMATION
  Report Type: Report from Study
  Country: US (occurrence: US)
  Receive Date: 20180201
  Receipt Date: 20180201
  Transmission Date: 20180509
  Serious: No
  Sender: FDA-Public Use
  Company Number: US-EXELIXIS-CABO-17009389

PATIENT
  Sex: Male

DRUGS (22)
  1. NIFEDIAC CC [Concomitant]
     Active Substance: NIFEDIPINE
  2. LUTIN [Concomitant]
  3. IMDUR [Concomitant]
     Active Substance: ISOSORBIDE MONONITRATE
  4. FENOFIBRATE. [Concomitant]
     Active Substance: FENOFIBRATE
  5. LANTUS [Concomitant]
     Active Substance: INSULIN GLARGINE
  6. RANITIDINE. [Concomitant]
     Active Substance: RANITIDINE
  7. FLOMAX [Concomitant]
     Active Substance: TAMSULOSIN HYDROCHLORIDE
  8. COMETRIQ [Suspect]
     Active Substance: CABOZANTINIB S-MALATE
     Indication: THYROID CANCER
     Dosage: 140 MG, QD
     Route: 048
     Dates: start: 20160203, end: 201603
  9. ISOSORBIDE. [Concomitant]
     Active Substance: ISOSORBIDE
  10. GLIMEPIRIDE. [Concomitant]
     Active Substance: GLIMEPIRIDE
  11. FENTANYL. [Concomitant]
     Active Substance: FENTANYL
  12. ZOCOR [Concomitant]
     Active Substance: SIMVASTATIN
  13. TOPROL XL [Concomitant]
     Active Substance: METOPROLOL SUCCINATE
  14. BUSPIRONE [Concomitant]
     Active Substance: BUSPIRONE HYDROCHLORIDE
  15. ULORIC [Concomitant]
     Active Substance: FEBUXOSTAT
  16. ZAFIRLUKAST. [Concomitant]
     Active Substance: ZAFIRLUKAST
  17. TAMSULOSIN [Concomitant]
     Active Substance: TAMSULOSIN
  18. HUMALOG [Concomitant]
     Active Substance: INSULIN LISPRO
  19. COMETRIQ [Suspect]
     Active Substance: CABOZANTINIB S-MALATE
     Dosage: 60 MG, QD
     Route: 048
     Dates: start: 201605
  20. MELATONIN [Concomitant]
     Active Substance: MELATONIN
  21. GABAPENTIN. [Concomitant]
     Active Substance: GABAPENTIN
  22. FISH OIL [Concomitant]
     Active Substance: FISH OIL

REACTIONS (2)
  - Back pain [Unknown]
  - Fatigue [Unknown]
